FAERS Safety Report 6245408-7 (Version None)
Quarter: 2009Q2

REPORT INFORMATION
  Report Type: 
  Country: None (occurrence: None)
  Receive Date: 20090625
  Receipt Date: 20090526
  Transmission Date: 20091009
  Serious: No
  Sender: FDA-Public Use
  Company Number: US-BAYER-200911649BCC

PATIENT
  Age: 34 Year
  Sex: Male
  Weight: 95 kg

DRUGS (1)
  1. ALEVE (CAPLET) [Suspect]
     Indication: HEADACHE
     Dosage: TOTAL DAILY DOSE: 440 MG  UNIT DOSE: 220 MG
     Route: 048
     Dates: start: 20090523

REACTIONS (3)
  - FEELING OF BODY TEMPERATURE CHANGE [None]
  - HEADACHE [None]
  - PAIN [None]
